FAERS Safety Report 23210159 (Version 3)
Quarter: 2024Q2

REPORT INFORMATION
  Report Type: Report from Study
  Country: US (occurrence: US)
  Receive Date: 20231121
  Receipt Date: 20240627
  Transmission Date: 20240716
  Serious: Yes (Other)
  Sender: FDA-Public Use
  Company Number: US-ROCHE-3459715

PATIENT
  Age: 60 Year
  Sex: Male

DRUGS (4)
  1. ZELBORAF [Suspect]
     Active Substance: VEMURAFENIB
     Indication: Malignant melanoma
     Dosage: TAKE 4 TABLET BY MOUTH TWICE A DAY
     Route: 048
  2. ZELBORAF [Suspect]
     Active Substance: VEMURAFENIB
     Indication: Metastases to gastrointestinal tract
     Dosage: TAKE 3 TABLETS (60 MG) BY MOUTH DAYS 1-21 EVERY 28 DAYS
     Route: 048
  3. COTELLIC [Suspect]
     Active Substance: COBIMETINIB
     Indication: Malignant melanoma
     Dosage: TAKE 3 TABLET(S) BY MOUTH DAILY FOR 21 DAYS ON, FOLLOWED BY 7 DAY REST PERIOD.
     Route: 048
  4. COTELLIC [Suspect]
     Active Substance: COBIMETINIB
     Indication: Metastases to gastrointestinal tract

REACTIONS (1)
  - Cerebrovascular accident [Unknown]
